FAERS Safety Report 4771431-5 (Version None)
Quarter: 2005Q3

REPORT INFORMATION
  Report Type: 
  Country: None (occurrence: None)
  Receive Date: 20050914
  Receipt Date: 20050902
  Transmission Date: 20060218
  Serious: Yes (Other)
  Sender: FDA-Public Use
  Company Number: 217473

PATIENT
  Age: 15 Year
  Sex: Female

DRUGS (1)
  1. NUTROPIN [Suspect]
     Dates: start: 20020101

REACTIONS (1)
  - BRAIN NEOPLASM [None]
